FAERS Safety Report 5135579-8 (Version None)
Quarter: 2006Q4

REPORT INFORMATION
  Report Type: 
  Country: None (occurrence: None)
  Receive Date: 20061026
  Receipt Date: 20040320
  Transmission Date: 20070319
  Serious: Yes (Hospitalization, Other)
  Sender: FDA-Public Use
  Company Number: US-AMGEN-US163453

PATIENT
  Sex: Female

DRUGS (8)
  1. ENBREL [Suspect]
     Indication: RHEUMATOID ARTHRITIS
     Route: 058
     Dates: start: 20000901, end: 20030301
  2. VASOTEC [Concomitant]
     Route: 065
  3. PREDNISONE TAB [Concomitant]
     Route: 065
  4. PREMPRO 14/14 [Concomitant]
     Route: 065
  5. CELEBREX [Concomitant]
     Route: 065
  6. ACIPHEX [Concomitant]
     Route: 065
  7. DYAZIDE [Concomitant]
     Route: 065
  8. LEUCOVORIN CALCIUM [Concomitant]
     Route: 065

REACTIONS (1)
  - ALVEOLITIS ALLERGIC [None]
